FAERS Safety Report 7576150-8 (Version None)
Quarter: 2011Q2

REPORT INFORMATION
  Report Type: 
  Country: None (occurrence: None)
  Receive Date: 20110623
  Receipt Date: 20110623
  Transmission Date: 20111010
  Serious: Yes (Hospitalization)
  Sender: FDA-Public Use
  Company Number: None

PATIENT
  Age: 63 Year
  Sex: Female

DRUGS (2)
  1. NAPROXEN [Suspect]
     Indication: BACK PAIN
     Dosage: 500MG BID-TID PO
     Route: 048
  2. NAPROXEN [Suspect]
     Indication: BACK PAIN
     Dosage: 220MG BID PO
     Route: 048

REACTIONS (1)
  - RENAL FAILURE ACUTE [None]
